FAERS Safety Report 4617506-2 (Version None)
Quarter: 2005Q1

REPORT INFORMATION
  Report Type: 
  Country: None (occurrence: None)
  Receive Date: 20050322
  Receipt Date: 20050308
  Transmission Date: 20050727
  Serious: Yes (Other)
  Sender: FDA-Public Use
  Company Number: 000#8#2005-00205

PATIENT
  Age: 40 Year
  Sex: Female

DRUGS (5)
  1. NITROGLYCERIN [Suspect]
     Indication: ANGINA PECTORIS
     Dosage: INTRAVENOUS
     Route: 042
  2. DILTIAZEM [Suspect]
     Indication: ANGINA PECTORIS
     Dosage: INTRAVENOUS
     Route: 042
  3. DILTIAZEM [Suspect]
     Indication: ARTERIOSPASM CORONARY
     Dosage: INTRAVENOUS
     Route: 042
  4. INTRACORONARY VASODILATORS [Suspect]
     Indication: ANGINA PECTORIS
     Dosage: INTRACORONARY
     Route: 022
  5. INTRACORONARY VASODILATORS [Suspect]
     Indication: ARTERIOSPASM CORONARY
     Dosage: INTRACORONARY
     Route: 022

REACTIONS (2)
  - DRUG INEFFECTIVE [None]
  - THERAPY NON-RESPONDER [None]
